FAERS Safety Report 8697510 (Version 3)
Quarter: 2013Q2

REPORT INFORMATION
  Report Type: Spontaneous
  Country: PL (occurrence: PL)
  Receive Date: 20120801
  Receipt Date: 20130531
  Transmission Date: 20140414
  Serious: Yes (Hospitalization)
  Sender: FDA-Public Use
  Company Number: PL-JNJFOC-20120800387

PATIENT
  Age: 76 Year
  Sex: Female

DRUGS (7)
  1. XARELTO [Suspect]
     Indication: CEREBROVASCULAR ACCIDENT PROPHYLAXIS
     Route: 048
  2. XARELTO [Suspect]
     Indication: ATRIAL FIBRILLATION
     Route: 048
  3. METOPROLOL [Concomitant]
     Route: 065
  4. VITAMIN K [Concomitant]
     Route: 065
  5. ENOXAPARIN [Concomitant]
     Route: 058
  6. WARFARIN [Concomitant]
     Route: 065
  7. ATORVASTATIN [Concomitant]
     Route: 065

REACTIONS (1)
  - Cardioversion [Recovered/Resolved]
